FAERS Safety Report 4599557-X (Version None)
Quarter: 2005Q1

REPORT INFORMATION
  Report Type: 
  Country: None (occurrence: None)
  Receive Date: 20050307
  Receipt Date: 20050301
  Transmission Date: 20050727
  Serious: Yes (Hospitalization)
  Sender: FDA-Public Use
  Company Number: 200510688JP

PATIENT
  Age: 73 Year
  Sex: Female

DRUGS (2)
  1. LANTUS [Suspect]
     Route: 058
     Dates: start: 20040804
  2. OPTIPEN (INSULIN PUMP) [Suspect]

REACTIONS (1)
  - HEPATIC FUNCTION ABNORMAL [None]
